FAERS Safety Report 24080757 (Version 1)
Quarter: 2024Q3

REPORT INFORMATION
  Report Type: Spontaneous
  Country: FR (occurrence: FR)
  Receive Date: 20240711
  Receipt Date: 20240711
  Transmission Date: 20241016
  Serious: Yes (Hospitalization, Other)
  Sender: MERCK
  Company Number: FR-009507513-2407FRA002808

PATIENT
  Age: 61 Year
  Sex: Female

DRUGS (2)
  1. PEMBROLIZUMAB [Suspect]
     Active Substance: PEMBROLIZUMAB
     Indication: Clear cell renal cell carcinoma
     Dosage: UNK
  2. AXITINIB [Suspect]
     Active Substance: AXITINIB
     Indication: Clear cell renal cell carcinoma
     Dosage: UNK

REACTIONS (7)
  - Cardiac failure [Recovering/Resolving]
  - Purpura fulminans [Recovered/Resolved]
  - Acute motor-sensory axonal neuropathy [Recovering/Resolving]
  - Myocarditis [Recovering/Resolving]
  - Colitis [Recovering/Resolving]
  - Hypothyroidism [Recovering/Resolving]
  - Hepatitis [Recovering/Resolving]
